FAERS Safety Report 8485656-9 (Version None)
Quarter: 2012Q3

REPORT INFORMATION
  Report Type: 
  Country: None (occurrence: None)
  Receive Date: 20120703
  Receipt Date: 20120604
  Transmission Date: 20120928
  Serious: No
  Sender: FDA-Public Use
  Company Number: US-ASTRAZENECA-2011SE46068

PATIENT
  Age: 61 Year
  Sex: Male

DRUGS (4)
  1. NEXIUM [Suspect]
     Dosage: TWO PER DAY
     Route: 048
  2. NEXIUM [Suspect]
     Route: 048
  3. ACCOLATE [Suspect]
     Dosage: TWO PER DAY
     Route: 048
  4. ACCOLATE [Suspect]
     Route: 048

REACTIONS (3)
  - ASTHMA [None]
  - INTENTIONAL DRUG MISUSE [None]
  - MULTIPLE ALLERGIES [None]
